FAERS Safety Report 7085571-1 (Version None)
Quarter: 2010Q4

REPORT INFORMATION
  Report Type: 
  Country: None (occurrence: None)
  Receive Date: 20101027
  Receipt Date: 20101015
  Transmission Date: 20110411
  Serious: Yes (Other)
  Sender: FDA-Public Use
  Company Number: 2010SP056016

PATIENT

DRUGS (1)
  1. DR. SCHOLL'S CLEAR AWAY PLANTAR WART REMOVER [Suspect]
     Indication: SKIN PAPILLOMA
     Dosage: TOP
     Route: 061

REACTIONS (1)
  - HALLUCINATION [None]
